FAERS Safety Report 9053888 (Version 1)
Quarter: 2013Q1

REPORT INFORMATION
  Report Type: Spontaneous
  Country: US (occurrence: None)
  Receive Date: 20130201
  Receipt Date: 20130201
  Transmission Date: 20140127
  Serious: No
  Sender: FDA-Public Use
  Company Number: None

PATIENT
  Age: 52 Year
  Sex: Female
  Weight: 52.16 kg

DRUGS (1)
  1. CIPRO [Suspect]
     Indication: EAR INFECTION
     Route: 048
     Dates: start: 20120107, end: 20120108

REACTIONS (5)
  - Rash [None]
  - Burning sensation [None]
  - Arthralgia [None]
  - Dry eye [None]
  - Back pain [None]
